FAERS Safety Report 7200459-0 (Version None)
Quarter: 2010Q4

REPORT INFORMATION
  Report Type: 
  Country: None (occurrence: None)
  Receive Date: 20101215
  Receipt Date: 20101211
  Transmission Date: 20110411
  Serious: Yes (Death, Hospitalization)
  Sender: FDA-Public Use
  Company Number: CLOF-1000821

PATIENT
  Age: 9 Year
  Sex: Female

DRUGS (13)
  1. CLOFARABINE (CLOFARABINE) SOLUTION FOR INFUSION [Suspect]
     Indication: ACUTE LYMPHOCYTIC LEUKAEMIA
     Dosage: 52 MG/M2, QDX5, INTRAVENOUS
     Route: 042
     Dates: start: 20070101, end: 20070101
  2. CYTARABINE [Suspect]
     Indication: ACUTE LYMPHOCYTIC LEUKAEMIA
     Dosage: 70 MG, ONCE, INTRATHECAL
     Route: 037
  3. METHOTREXATE [Suspect]
     Indication: ACUTE LYMPHOCYTIC LEUKAEMIA
     Dosage: 15 MG, ONCE, INTRATHECAL
     Route: 037
  4. ALLOPURINOL [Concomitant]
  5. CEFTAZIDIME [Concomitant]
  6. LEVOTHYROXINE [Concomitant]
  7. LANSOPRAZOLE [Concomitant]
  8. ONDANSETRON [Concomitant]
  9. GRAVOL TAB [Concomitant]
  10. FLUCONAZOLE [Concomitant]
  11. FLUTICASONE PROPIONATE [Concomitant]
  12. GRANULOCYTE COLONY STIMULATING FACTOR [Concomitant]
  13. HYDROCORTONE [Concomitant]

REACTIONS (4)
  - CEREBRAL INFARCTION [None]
  - DIARRHOEA [None]
  - PALMAR-PLANTAR ERYTHRODYSAESTHESIA SYNDROME [None]
  - RADIATION INJURY [None]
